FAERS Safety Report 20900175 (Version 1)
Quarter: 2022Q2

REPORT INFORMATION
  Report Type: Spontaneous
  Country: US (occurrence: US)
  Receive Date: 20220601
  Receipt Date: 20220601
  Transmission Date: 20220720
  Serious: Yes (Hospitalization)
  Sender: FDA-Public Use
  Company Number: US-MYLANLABS-2022M1039775

PATIENT
  Age: 17 Year
  Sex: Male

DRUGS (3)
  1. LEVOFLOXACIN [Suspect]
     Active Substance: LEVOFLOXACIN
     Indication: Antibiotic therapy
     Dosage: UNK
  2. AZITHROMYCIN [Suspect]
     Active Substance: AZITHROMYCIN
     Indication: Antibiotic therapy
     Dosage: UNK
  3. AMPICILLIN [Suspect]
     Active Substance: AMPICILLIN
     Indication: Antibiotic therapy
     Dosage: UNK

REACTIONS (1)
  - Drug ineffective [Unknown]
